FAERS Safety Report 10860772 (Version 1)
Quarter: 2015Q1

REPORT INFORMATION
  Report Type: Report from Study
  Country: US (occurrence: US)
  Receive Date: 20150224
  Receipt Date: 20150224
  Transmission Date: 20150721
  Serious: Yes (Disabling, Other)
  Sender: FDA-Public Use
  Company Number: US-AMGEN-USASL2015016496

PATIENT
  Age: 75 Year
  Sex: Female

DRUGS (1)
  1. ENBREL [Suspect]
     Active Substance: ETANERCEPT
     Indication: RHEUMATOID ARTHRITIS
     Dosage: 50 MG, QWK
     Route: 065
     Dates: start: 201409

REACTIONS (5)
  - Pain in extremity [Not Recovered/Not Resolved]
  - Aspiration joint [Unknown]
  - Arthralgia [Not Recovered/Not Resolved]
  - Wheelchair user [Unknown]
  - Abasia [Unknown]

NARRATIVE: CASE EVENT DATE: 201502
